FAERS Safety Report 5073241-0 (Version None)
Quarter: 2006Q3

REPORT INFORMATION
  Report Type: 
  Country: None (occurrence: None)
  Receive Date: 20060808
  Receipt Date: 20060728
  Transmission Date: 20061208
  Serious: Yes (Other)
  Sender: FDA-Public Use
  Company Number: GB-ABBOTT-06P-167-0339151-00

PATIENT
  Sex: Male

DRUGS (4)
  1. EPILIM [Suspect]
     Indication: CONVULSION PROPHYLAXIS
     Route: 065
  2. EPILIM [Suspect]
  3. WARFARIN [Suspect]
     Indication: DRUG USE FOR UNKNOWN INDICATION
     Route: 065
  4. WARFARIN [Suspect]

REACTIONS (5)
  - DEEP VEIN THROMBOSIS [None]
  - DRUG INTERACTION [None]
  - FIBRIN D DIMER NORMAL [None]
  - INTERNATIONAL NORMALISED RATIO ABNORMAL [None]
  - PULMONARY EMBOLISM [None]
